FAERS Safety Report 19948534 (Version 1)
Quarter: 2021Q4

REPORT INFORMATION
  Report Type: Spontaneous
  Country: US (occurrence: US)
  Receive Date: 20211012
  Receipt Date: 20211012
  Transmission Date: 20220303
  Serious: No
  Sender: FDA-Public Use
  Company Number: US-SANOFI-00804591

PATIENT
  Age: 14 Year
  Sex: Male

DRUGS (1)
  1. CHILDREN^S ALLEGRA ALLERGY [Suspect]
     Active Substance: FEXOFENADINE HYDROCHLORIDE
     Indication: Dermatitis allergic
     Dosage: DRUG STRUCTURE DOSAGE : 1 TABLET DRUG INTERVAL DOSAGE : EVERY 12 HOURS

REACTIONS (2)
  - Vomiting [Unknown]
  - Expired product administered [Unknown]
